FAERS Safety Report 7020661-0 (Version None)
Quarter: 2010Q3

REPORT INFORMATION
  Report Type: 
  Country: None (occurrence: None)
  Receive Date: 20100929
  Receipt Date: 20100927
  Transmission Date: 20110219
  Serious: Yes (Hospitalization)
  Sender: FDA-Public Use
  Company Number: US-GILEAD-2010-0031787

PATIENT
  Sex: Female
  Weight: 56.296 kg

DRUGS (10)
  1. LETAIRIS [Suspect]
     Indication: PULMONARY ARTERIAL HYPERTENSION
     Route: 048
     Dates: start: 20100607
  2. TYVASO [Concomitant]
  3. REVATIO [Concomitant]
  4. WARFARIN SODIUM [Concomitant]
  5. METHLYPREDNISONE [Concomitant]
  6. OMEPRAZOLE [Concomitant]
  7. PREDNISONE [Concomitant]
  8. DESIPRAMINE HCL [Concomitant]
  9. GERITOL [Concomitant]
  10. CALCIUM [Concomitant]

REACTIONS (1)
  - SYSTEMIC LUPUS ERYTHEMATOSUS [None]
